FAERS Safety Report 16032976 (Version 4)
Quarter: 2019Q1

REPORT INFORMATION
  Report Type: Spontaneous
  Country: US (occurrence: US)
  Receive Date: 20190305
  Receipt Date: 20190322
  Transmission Date: 20190418
  Serious: Yes (Life-Threatening, Hospitalization, Other)
  Sender: FDA-Public Use
  Company Number: US-009507513-1006USA01103

PATIENT
  Sex: Female
  Weight: 77 kg

DRUGS (2)
  1. CUBICIN [Suspect]
     Active Substance: DAPTOMYCIN
     Dosage: 500 MG, Q24H
     Route: 042
     Dates: start: 20090828, end: 20090914
  2. CUBICIN [Suspect]
     Active Substance: DAPTOMYCIN
     Dosage: 6.5 MG/KG,Q24H
     Route: 042
     Dates: start: 20090828, end: 20090914

REACTIONS (2)
  - Respiratory failure [Not Recovered/Not Resolved]
  - Alveolitis allergic [Not Recovered/Not Resolved]

NARRATIVE: CASE EVENT DATE: 20090912
